FAERS Safety Report 14215581 (Version 1)
Quarter: 2017Q4

REPORT INFORMATION
  Report Type: Report from Study
  Country: TR (occurrence: TR)
  Receive Date: 20171122
  Receipt Date: 20171122
  Transmission Date: 20180321
  Serious: Yes (Other)
  Sender: FDA-Public Use
  Company Number: TR-EMD SERONO-8205298

PATIENT
  Age: 43 Year
  Sex: Female

DRUGS (1)
  1. REBIF [Suspect]
     Active Substance: INTERFERON BETA-1A
     Indication: MULTIPLE SCLEROSIS
     Route: 058
     Dates: start: 20080701

REACTIONS (9)
  - Red cell distribution width increased [Unknown]
  - Mean cell volume decreased [Unknown]
  - Mean cell haemoglobin decreased [Unknown]
  - Mean cell haemoglobin concentration decreased [Unknown]
  - Anaemia [Not Recovered/Not Resolved]
  - Platelet count increased [Unknown]
  - Palpitations [Unknown]
  - Procalcitonin increased [Unknown]
  - Platelet distribution width decreased [Unknown]

NARRATIVE: CASE EVENT DATE: 20171110
